FAERS Safety Report 5558283-0 (Version None)
Quarter: 2007Q4

REPORT INFORMATION
  Report Type: 
  Country: None (occurrence: None)
  Receive Date: 20071214
  Receipt Date: 20071202
  Transmission Date: 20080405
  Serious: Yes (Other)
  Sender: FDA-Public Use
  Company Number: US-PFIZER INC-2007097764

PATIENT
  Age: 66 Year
  Sex: Female

DRUGS (2)
  1. CHANTIX [Suspect]
  2. CYMBALTA [Suspect]

REACTIONS (18)
  - ABNORMAL DREAMS [None]
  - BACK PAIN [None]
  - CHEST DISCOMFORT [None]
  - CONFUSIONAL STATE [None]
  - DEPRESSION [None]
  - DRY EYE [None]
  - DRY SKIN [None]
  - HAIR TEXTURE ABNORMAL [None]
  - HEADACHE [None]
  - INSOMNIA [None]
  - MEMORY IMPAIRMENT [None]
  - MENTAL IMPAIRMENT [None]
  - MICTURITION URGENCY [None]
  - PAIN IN EXTREMITY [None]
  - PALPITATIONS [None]
  - RESTLESSNESS [None]
  - TARSAL TUNNEL SYNDROME [None]
  - URINARY INCONTINENCE [None]
